FAERS Safety Report 9624721 (Version 1)
Quarter: 2013Q4

REPORT INFORMATION
  Report Type: Spontaneous
  Country: AU (occurrence: AU)
  Receive Date: 20131015
  Receipt Date: 20131015
  Transmission Date: 20140711
  Serious: Yes (Other)
  Sender: FDA-Public Use
  Company Number: AU-ABBVIE-13P-008-1157805-00

PATIENT
  Sex: Male

DRUGS (3)
  1. EPILIM [Suspect]
     Indication: PRODUCT USED FOR UNKNOWN INDICATION
  2. CLOZAPINE [Suspect]
     Indication: PRODUCT USED FOR UNKNOWN INDICATION
  3. RANI 2 [Suspect]
     Indication: PRODUCT USED FOR UNKNOWN INDICATION

REACTIONS (13)
  - Myocarditis [Unknown]
  - Chest pain [Unknown]
  - C-reactive protein increased [Unknown]
  - Dyspnoea [Unknown]
  - Eosinophil count increased [Unknown]
  - Hypotension [Unknown]
  - Lymphocyte count decreased [Unknown]
  - Malaise [Unknown]
  - Nausea [Unknown]
  - Pyrexia [Unknown]
  - Red blood cell sedimentation rate increased [Unknown]
  - Tachycardia [Unknown]
  - Troponin I increased [Not Recovered/Not Resolved]
